FAERS Safety Report 22332833 (Version 1)
Quarter: 2023Q2

REPORT INFORMATION
  Report Type: Spontaneous
  Country: CA (occurrence: CA)
  Receive Date: 20230517
  Receipt Date: 20230517
  Transmission Date: 20230721
  Serious: Yes (Death)
  Sender: FDA-Public Use
  Company Number: CA-GE HEALTHCARE-2023CSU003675

PATIENT
  Age: 77 Year
  Sex: Male

DRUGS (2)
  1. VISIPAQUE [Suspect]
     Active Substance: IODIXANOL
     Indication: Computerised tomogram abdomen
     Dosage: 70 ML, INTO 18G IV IN RIGHT ANTECUBITAL, ONCE
     Route: 042
     Dates: start: 20230419, end: 20230419
  2. VISIPAQUE [Suspect]
     Active Substance: IODIXANOL
     Indication: Pancreatitis

REACTIONS (2)
  - Air embolism [Fatal]
  - Cardiac arrest [Fatal]

NARRATIVE: CASE EVENT DATE: 20230419
